FAERS Safety Report 9711286 (Version 1)
Quarter: 2013Q4

REPORT INFORMATION
  Report Type: Spontaneous
  Country: US (occurrence: US)
  Receive Date: 20131126
  Receipt Date: 20131126
  Transmission Date: 20140711
  Serious: No
  Sender: FDA-Public Use
  Company Number: US-BRISTOL-MYERS SQUIBB COMPANY-19056639

PATIENT
  Age: 64 Year
  Sex: Female
  Weight: 68.93 kg

DRUGS (5)
  1. BYDUREON 2MG SUSPENSION [Suspect]
     Indication: TYPE 2 DIABETES MELLITUS
     Route: 058
     Dates: start: 20130425
  2. NOVOLOG [Concomitant]
  3. LEVEMIR [Concomitant]
  4. GLUCOPHAGE [Concomitant]
  5. GLIPIZIDE [Concomitant]

REACTIONS (3)
  - Injection site mass [Not Recovered/Not Resolved]
  - Weight decreased [Unknown]
  - Decreased appetite [Unknown]
